FAERS Safety Report 17092619 (Version 1)
Quarter: 2019Q4

REPORT INFORMATION
  Report Type: Spontaneous
  Country: US (occurrence: US)
  Receive Date: 20191129
  Receipt Date: 20191129
  Transmission Date: 20200122
  Serious: Yes (Hospitalization)
  Sender: FDA-Public Use
  Company Number: US-BRISTOL-MYERS SQUIBB COMPANY-BMS-2019-111778

PATIENT
  Sex: Female

DRUGS (1)
  1. OPDIVO [Suspect]
     Active Substance: NIVOLUMAB
     Indication: RENAL CELL CARCINOMA STAGE II
     Dosage: UNK
     Route: 065
     Dates: end: 201905

REACTIONS (4)
  - Arthralgia [Unknown]
  - Infection [Unknown]
  - Conjunctivitis [Unknown]
  - Gait disturbance [Unknown]
